FAERS Safety Report 13291993 (Version 2)
Quarter: 2017Q3

REPORT INFORMATION
  Report Type: Spontaneous
  Country: US (occurrence: US)
  Receive Date: 20170303
  Receipt Date: 20170811
  Transmission Date: 20171127
  Serious: No
  Sender: FDA-Public Use
  Company Number: US-GLAXOSMITHKLINE-US2017GSK029304

PATIENT
  Sex: Female
  Weight: 59.96 kg

DRUGS (1)
  1. BACTROBAN [Suspect]
     Active Substance: MUPIROCIN\MUPIROCIN CALCIUM
     Indication: PRODUCT USED FOR UNKNOWN INDICATION

REACTIONS (4)
  - Drug hypersensitivity [Recovered/Resolved]
  - Pruritus [Unknown]
  - Urticaria [Recovered/Resolved]
  - Ear deformity acquired [Unknown]
